FAERS Safety Report 7592169-5 (Version None)
Quarter: 2011Q2

REPORT INFORMATION
  Report Type: 
  Country: None (occurrence: None)
  Receive Date: 20110609
  Receipt Date: 20110314
  Transmission Date: 20111010
  Serious: Yes (Hospitalization)
  Sender: FDA-Public Use
  Company Number: US-004914

PATIENT
  Sex: Female
  Weight: 81.6475 kg

DRUGS (6)
  1. VITAMINS NOS [Concomitant]
  2. MEDROXYPROGESTERONE [Suspect]
     Dosage: (10 MG QD)
     Dates: start: 20110224, end: 20110308
  3. LEVOTHROID [Concomitant]
  4. FERROUS SULFATE TAB [Concomitant]
  5. TRANEXAMIC ACID [Suspect]
     Indication: MENORRHAGIA
     Dosage: (TWO TABLETS THREE TIMES A DAY ORAL)
     Route: 048
     Dates: start: 20110218, end: 20110308
  6. METOPROLOL TARTRATE [Concomitant]

REACTIONS (3)
  - BLOOD COUNT ABNORMAL [None]
  - DIZZINESS [None]
  - DRUG INEFFECTIVE [None]
